FAERS Safety Report 9010973 (Version 4)
Quarter: 2013Q4

REPORT INFORMATION
  Report Type: Spontaneous
  Country: US (occurrence: US)
  Receive Date: 20130109
  Receipt Date: 20131007
  Transmission Date: 20140711
  Serious: Yes (Hospitalization, Other)
  Sender: FDA-Public Use
  Company Number: US-009507513-1301USA002433

PATIENT
  Sex: Female
  Weight: 70.3 kg

DRUGS (1)
  1. NUVARING [Suspect]
     Indication: CONTRACEPTION
     Dosage: UNK UNK, QM
     Route: 067
     Dates: start: 200812, end: 20090302

REACTIONS (8)
  - Pleuritic pain [Unknown]
  - Pleural effusion [Unknown]
  - Pulmonary embolism [Recovered/Resolved]
  - Abdominal pain [Unknown]
  - Antiphospholipid antibodies positive [Recovered/Resolved]
  - Tonsillectomy [Unknown]
  - Lower respiratory tract infection [Unknown]
  - Immune system disorder [Unknown]
